FAERS Safety Report 5594577-0 (Version None)
Quarter: 2008Q1

REPORT INFORMATION
  Report Type: 
  Country: None (occurrence: None)
  Receive Date: 20080115
  Receipt Date: 20080111
  Transmission Date: 20080703
  Serious: Yes (Hospitalization)
  Sender: FDA-Public Use
  Company Number: 2008SP000919

PATIENT
  Age: 29 Year
  Sex: Female

DRUGS (4)
  1. DESLORATADINE [Suspect]
     Indication: RHINITIS ALLERGIC
     Dosage: 1 DF; ONCE; PO
     Route: 048
     Dates: start: 20070923, end: 20070923
  2. ACETAMINOPHEN [Suspect]
     Indication: RHINITIS ALLERGIC
     Dosage: 1 DF; ONCE; PO, 1 DF; ONCE; PO
     Route: 048
     Dates: start: 20070922, end: 20070922
  3. ACETAMINOPHEN [Suspect]
     Indication: RHINITIS ALLERGIC
     Dosage: 1 DF; ONCE; PO, 1 DF; ONCE; PO
     Route: 048
     Dates: start: 20070923, end: 20070923
  4. EFFERALGAN [Concomitant]

REACTIONS (5)
  - ANTINUCLEAR ANTIBODY POSITIVE [None]
  - CRYOGLOBULINAEMIA [None]
  - OEDEMA PERIPHERAL [None]
  - SKIN PLAQUE [None]
  - URTICARIA [None]
